FAERS Safety Report 7016631-9 (Version None)
Quarter: 2010Q3

REPORT INFORMATION
  Report Type: 
  Country: None (occurrence: None)
  Receive Date: 20100927
  Receipt Date: 20100916
  Transmission Date: 20110219
  Serious: Yes (Hospitalization)
  Sender: FDA-Public Use
  Company Number: B0676066A

PATIENT
  Age: 65 Year
  Sex: Female

DRUGS (1)
  1. PAROXETINE HCL [Suspect]
     Indication: PRODUCT USED FOR UNKNOWN INDICATION
     Dosage: 20MG PER DAY
     Route: 048
     Dates: start: 20100304, end: 20100701

REACTIONS (5)
  - DISINHIBITION [None]
  - FALL [None]
  - IRRITABILITY [None]
  - LOSS OF CONSCIOUSNESS [None]
  - POST-TRAUMATIC AMNESTIC DISORDER [None]
